FAERS Safety Report 4916062-9 (Version None)
Quarter: 2006Q1

REPORT INFORMATION
  Report Type: 
  Country: None (occurrence: None)
  Receive Date: 20060214
  Receipt Date: 20060203
  Transmission Date: 20060701
  Serious: Yes (Hospitalization)
  Sender: FDA-Public Use
  Company Number: 2006018986

PATIENT
  Sex: Male
  Weight: 145.151 kg

DRUGS (6)
  1. VISTARIL CAP [Suspect]
     Indication: URTICARIA
     Dosage: 25 MG (25 MG, 1 IN 1 D), ORAL
     Route: 048
  2. CELEBREX [Suspect]
     Indication: OSTEOARTHRITIS
  3. DIXEPIN (CAPS) (DOXEPIN) [Suspect]
     Indication: URTICARIA
  4. PREDNISONE TAB [Suspect]
     Indication: URTICARIA
  5. ALLEGRA [Suspect]
     Indication: URTICARIA
  6. ZESTRIL [Suspect]
     Indication: HYPERTENSION

REACTIONS (6)
  - DERMOGRAPHISM [None]
  - DRUG INEFFECTIVE [None]
  - DUODENAL ULCER [None]
  - FATIGUE [None]
  - HYPERTENSION [None]
  - OSTEOARTHRITIS [None]
